FAERS Safety Report 5235555-0 (Version None)
Quarter: 2007Q1

REPORT INFORMATION
  Report Type: 
  Country: None (occurrence: None)
  Receive Date: 20070208
  Receipt Date: 20070208
  Transmission Date: 20070707
  Serious: Yes (Life-Threatening, Hospitalization)
  Sender: FDA-Public Use
  Company Number: None

PATIENT
  Age: 15 Year
  Sex: Male
  Weight: 44.3 kg

DRUGS (4)
  1. REMICADE [Suspect]
     Indication: CROHN'S DISEASE
     Dosage: FROM HOME HEALTH IV DRIP
     Route: 041
     Dates: start: 20040101, end: 20070101
  2. FLAGYL [Concomitant]
  3. PREVACID [Concomitant]
  4. REMICADE [Concomitant]

REACTIONS (31)
  - ABDOMINAL DISTENSION [None]
  - ABDOMINAL PAIN UPPER [None]
  - ANAEMIA [None]
  - BLOOD PH INCREASED [None]
  - BLOOD POTASSIUM DECREASED [None]
  - BOWEL SOUNDS ABNORMAL [None]
  - CHILLS [None]
  - DECREASED APPETITE [None]
  - FLUID RETENTION [None]
  - HAEMATOCRIT DECREASED [None]
  - HAEMODYNAMIC INSTABILITY [None]
  - HEART RATE INCREASED [None]
  - HYPERDYNAMIC PRECORDIUM [None]
  - HYPOTENSION [None]
  - IMMUNOSUPPRESSION [None]
  - LIP DRY [None]
  - LIVER ABSCESS [None]
  - MALAISE [None]
  - MUCOSAL DISCOLOURATION [None]
  - NAUSEA [None]
  - NIGHT SWEATS [None]
  - PALLOR [None]
  - PCO2 DECREASED [None]
  - PLATELET COUNT INCREASED [None]
  - PYREXIA [None]
  - RESPIRATORY RATE INCREASED [None]
  - SEPSIS [None]
  - SEPTIC SHOCK [None]
  - STREPTOCOCCAL INFECTION [None]
  - VOMITING [None]
  - WEIGHT DECREASED [None]
